FAERS Safety Report 9361113 (Version 3)
Quarter: 2013Q4

REPORT INFORMATION
  Report Type: Spontaneous
  Country: US (occurrence: US)
  Receive Date: 20130621
  Receipt Date: 20131022
  Transmission Date: 20140711
  Serious: Yes (Other)
  Sender: FDA-Public Use
  Company Number: US-SANOFI-AVENTIS-2013SA051127

PATIENT
  Age: 53 Year
  Sex: Female
  Weight: 100 kg

DRUGS (14)
  1. AUBAGIO [Suspect]
     Indication: MULTIPLE SCLEROSIS
     Route: 048
     Dates: start: 20130513
  2. AUBAGIO [Suspect]
     Indication: MULTIPLE SCLEROSIS
     Route: 048
     Dates: start: 20130513
  3. AUBAGIO [Suspect]
     Indication: MULTIPLE SCLEROSIS
     Route: 048
  4. AUBAGIO [Suspect]
     Indication: MULTIPLE SCLEROSIS
     Route: 048
  5. AUBAGIO [Suspect]
     Indication: MULTIPLE SCLEROSIS
     Route: 048
  6. METHADONE [Concomitant]
     Indication: PAIN
     Dates: start: 2011
  7. GABAPENTIN [Concomitant]
     Indication: PAIN
     Dates: start: 2007
  8. BACLOFEN [Concomitant]
     Indication: MUSCLE SPASMS
  9. FLEXERIL [Concomitant]
     Indication: MUSCLE SPASMS
     Dates: start: 2012
  10. CELEXA [Concomitant]
  11. METOPROLOL [Concomitant]
     Indication: BLOOD PRESSURE
  12. TRICOR [Concomitant]
     Indication: BLOOD TRIGLYCERIDES
  13. HYOSCYAMINE [Concomitant]
  14. HYDROXYZINE HYDROCHLORIDE [Concomitant]

REACTIONS (17)
  - Panic attack [Not Recovered/Not Resolved]
  - Nausea [Not Recovered/Not Resolved]
  - Decreased appetite [Not Recovered/Not Resolved]
  - Hyperhidrosis [Not Recovered/Not Resolved]
  - Cold sweat [Not Recovered/Not Resolved]
  - Feeling abnormal [Not Recovered/Not Resolved]
  - Lethargy [Not Recovered/Not Resolved]
  - Multiple sclerosis relapse [Not Recovered/Not Resolved]
  - Vision blurred [Not Recovered/Not Resolved]
  - Condition aggravated [Not Recovered/Not Resolved]
  - Somnolence [Not Recovered/Not Resolved]
  - Blood glucose increased [Not Recovered/Not Resolved]
  - Feeling hot [Not Recovered/Not Resolved]
  - Abdominal pain [Not Recovered/Not Resolved]
  - Abdominal pain upper [Not Recovered/Not Resolved]
  - Abdominal discomfort [Not Recovered/Not Resolved]
  - Drug dose omission [Unknown]
